FAERS Safety Report 20112333 (Version 2)
Quarter: 2022Q1

REPORT INFORMATION
  Report Type: Other
  Country: GB (occurrence: GB)
  Receive Date: 20211125
  Receipt Date: 20220225
  Transmission Date: 20220423
  Serious: Yes (Disabling)
  Sender: FDA-Public Use
  Company Number: GB-MACLEODS PHARMA UK LTD-MAC2021033475

PATIENT

DRUGS (2)
  1. ESCITALOPRAM [Suspect]
     Active Substance: ESCITALOPRAM OXALATE
     Indication: Depression
     Dosage: 10 MILLIGRAM
     Route: 048
     Dates: start: 20201202, end: 20210130
  2. ESCITALOPRAM [Suspect]
     Active Substance: ESCITALOPRAM OXALATE
     Indication: Bereavement

REACTIONS (14)
  - Withdrawal syndrome [Not Recovered/Not Resolved]
  - Anhedonia [Unknown]
  - General symptom [Not Recovered/Not Resolved]
  - Fear [Unknown]
  - Paraesthesia [Unknown]
  - Decreased appetite [Unknown]
  - Anxiety [Unknown]
  - Dizziness [Not Recovered/Not Resolved]
  - Irritability [Unknown]
  - Medication error [Unknown]
  - Limb discomfort [Unknown]
  - Muscle tightness [Unknown]
  - Depressed level of consciousness [Unknown]
  - Insomnia [Unknown]

NARRATIVE: CASE EVENT DATE: 20210202
